FAERS Safety Report 22060993 (Version 2)
Quarter: 2023Q1

REPORT INFORMATION
  Report Type: Report from Study
  Country: US (occurrence: US)
  Receive Date: 20230303
  Receipt Date: 20230319
  Transmission Date: 20230417
  Serious: Yes (Hospitalization)
  Sender: FDA-Public Use
  Company Number: US-SEATTLE GENETICS-2023SGN02087

PATIENT
  Age: 74 Year
  Sex: Female
  Weight: 89.342 kg

DRUGS (2)
  1. BRENTUXIMAB VEDOTIN [Suspect]
     Active Substance: BRENTUXIMAB VEDOTIN
     Indication: Metastatic malignant melanoma
     Dosage: 1.8 MG/KG ON DAY 1 OF EVERY 21-DAY CYCLE
     Route: 042
     Dates: start: 20220201, end: 20230214
  2. PEMBROLIZUMAB [Suspect]
     Active Substance: PEMBROLIZUMAB
     Indication: Metastatic malignant melanoma
     Dosage: 200 MG ON DAY 1 OF EVERY 21-DAY CYCLE
     Route: 042
     Dates: start: 20220201, end: 20230214

REACTIONS (1)
  - Hip fracture [Not Recovered/Not Resolved]

NARRATIVE: CASE EVENT DATE: 20230217
